FAERS Safety Report 5148149-2 (Version None)
Quarter: 2006Q4

REPORT INFORMATION
  Report Type: 
  Country: None (occurrence: None)
  Receive Date: 20061110
  Receipt Date: 20061030
  Transmission Date: 20070319
  Serious: Yes (Hospitalization)
  Sender: FDA-Public Use
  Company Number: 2006CG01759

PATIENT
  Age: 48 Year
  Sex: Male
  Weight: 71 kg

DRUGS (6)
  1. TENORETIC 100 [Suspect]
     Dosage: 75 + 18.25 MG DAILY
     Route: 048
     Dates: end: 20060501
  2. TEGRETOL [Interacting]
     Route: 048
     Dates: end: 20060501
  3. ALDACTONE [Concomitant]
     Route: 048
     Dates: end: 20060501
  4. BUSPAR [Concomitant]
     Route: 048
  5. EPITOMAX [Concomitant]
  6. KEPPRA [Concomitant]
     Route: 048

REACTIONS (7)
  - ANTICONVULSANT DRUG LEVEL INCREASED [None]
  - ASTHENIA [None]
  - DRUG INTERACTION [None]
  - GENERAL PHYSICAL HEALTH DETERIORATION [None]
  - HYPOKALAEMIA [None]
  - HYPONATRAEMIA [None]
  - VOMITING [None]
